FAERS Safety Report 16071819 (Version 1)
Quarter: 2019Q2

REPORT INFORMATION
  Report Type: Spontaneous
  Country: US (occurrence: US)
  Receive Date: 20190314
  Receipt Date: 20190314
  Transmission Date: 20190711
  Serious: Yes (Other)
  Sender: FDA-Public Use
  Company Number: None

PATIENT
  Age: 77 Year
  Sex: Male
  Weight: 81.65 kg

DRUGS (1)
  1. PROHANCE [Suspect]
     Active Substance: GADOTERIDOL
     Indication: PROSTATE CANCER
     Route: 042

REACTIONS (6)
  - Cough [None]
  - Lip swelling [None]
  - Swelling face [None]
  - Sensation of foreign body [None]
  - Eye swelling [None]
  - Pruritus [None]

NARRATIVE: CASE EVENT DATE: 20190314
